FAERS Safety Report 10147121 (Version 1)
Quarter: 2014Q2

REPORT INFORMATION
  Report Type: Spontaneous
  Country: US (occurrence: US)
  Receive Date: 20140501
  Receipt Date: 20140501
  Transmission Date: 20141212
  Serious: Yes (Other)
  Sender: FDA-Public Use
  Company Number: US-BAYER-2014-062688

PATIENT
  Sex: Female
  Weight: 58.96 kg

DRUGS (2)
  1. ALKA-SELTZER PLUS SEVERE SINUS CONGESTION ALLERGY + COUGH LIQUID G [Suspect]
     Indication: SEASONAL ALLERGY
     Dosage: 2 DF, ONCE
     Route: 048
     Dates: start: 20140425, end: 20140425
  2. BAYER GENUINE ASPIRIN ORIGINAL STRENGTH [Suspect]

REACTIONS (2)
  - Choking [Recovered/Resolved]
  - Nausea [Recovered/Resolved]
